FAERS Safety Report 9642536 (Version 1)
Quarter: 2013Q4

REPORT INFORMATION
  Report Type: Spontaneous
  Country: US (occurrence: US)
  Receive Date: 20131024
  Receipt Date: 20131024
  Transmission Date: 20140711
  Serious: Yes (Other)
  Sender: FDA-Public Use
  Company Number: US-MYLANLABS-2013S1023213

PATIENT
  Age: 3 Year
  Sex: Male

DRUGS (1)
  1. TRAMADOL [Suspect]
     Route: 048

REACTIONS (7)
  - Depressed level of consciousness [Recovering/Resolving]
  - Drug screen false positive [Unknown]
  - Respiration abnormal [Unknown]
  - Ataxia [Unknown]
  - Protrusion tongue [Unknown]
  - Vomiting [Unknown]
  - Overdose [Recovering/Resolving]
